FAERS Safety Report 4498517-7 (Version None)
Quarter: 2004Q4

REPORT INFORMATION
  Report Type: 
  Country: None (occurrence: None)
  Receive Date: 20041105
  Receipt Date: 20041029
  Transmission Date: 20050328
  Serious: Yes (Hospitalization)
  Sender: FDA-Public Use
  Company Number: S04-USA-07139-01

PATIENT
  Age: 76 Year
  Sex: Male

DRUGS (10)
  1. NAMENDA [Suspect]
     Indication: DEMENTIA ALZHEIMER'S TYPE
     Dosage: 5 MG QD PO
     Route: 048
     Dates: start: 20041004, end: 20041010
  2. NAMENDA [Suspect]
     Indication: DEMENTIA ALZHEIMER'S TYPE
     Dosage: 5 MG BID PO
     Route: 048
     Dates: start: 20041011, end: 20041017
  3. NAMENDA [Suspect]
     Indication: DEMENTIA ALZHEIMER'S TYPE
     Dosage: 15 MG QD PO
     Route: 048
     Dates: start: 20041018, end: 20041024
  4. NAMENDA [Suspect]
     Indication: DEMENTIA ALZHEIMER'S TYPE
     Dosage: 10 MG BID PO
     Route: 048
     Dates: start: 20041025, end: 20041026
  5. LISINOPRIL [Concomitant]
  6. ARICEPT [Concomitant]
  7. TRICOR [Concomitant]
  8. ALLOPURINOL [Concomitant]
  9. TRENTAL [Concomitant]
  10. ASPIRIN [Concomitant]

REACTIONS (3)
  - GASTRITIS [None]
  - HICCUPS [None]
  - OESOPHAGITIS [None]
